FAERS Safety Report 4680682-X (Version None)
Quarter: 2005Q2

REPORT INFORMATION
  Report Type: 
  Country: None (occurrence: None)
  Receive Date: 20050603
  Receipt Date: 20050516
  Transmission Date: 20051028
  Serious: Yes (Hospitalization)
  Sender: FDA-Public Use
  Company Number: 2005UW07535

PATIENT
  Age: 69 Year
  Sex: Female
  Weight: 77.1 kg

DRUGS (11)
  1. CRESTOR [Suspect]
     Indication: BLOOD CHOLESTEROL INCREASED
     Route: 048
     Dates: start: 20040408, end: 20040822
  2. CRESTOR [Suspect]
     Route: 048
     Dates: start: 20040822
  3. ASPIRIN [Concomitant]
     Route: 048
  4. LOPRESSOR [Concomitant]
  5. HYZAAR [Concomitant]
     Dosage: 100-25 MG
  6. GEMFIBROZIL [Concomitant]
  7. CAPTOPRIL [Concomitant]
  8. GLYBURIDE [Concomitant]
  9. AVANDIA [Concomitant]
  10. CALCIUM + VITAMIN D [Concomitant]
  11. LEVAQUIN [Concomitant]

REACTIONS (17)
  - ANOREXIA [None]
  - BRONCHITIS ACUTE VIRAL [None]
  - CHEST PAIN [None]
  - DEHYDRATION [None]
  - DYSPNOEA [None]
  - HYPOCHLORAEMIA [None]
  - HYPOKALAEMIA [None]
  - HYPONATRAEMIA [None]
  - HYPOVOLAEMIA [None]
  - MUSCLE ATROPHY [None]
  - MUSCLE INJURY [None]
  - MUSCULAR WEAKNESS [None]
  - MYOPATHY TOXIC [None]
  - NAUSEA [None]
  - NEUTROPENIA [None]
  - OEDEMA PERIPHERAL [None]
  - RESPIRATORY TRACT INFECTION VIRAL [None]
